FAERS Safety Report 24667375 (Version 1)
Quarter: 2024Q4

REPORT INFORMATION
  Report Type: Other
  Country: CN (occurrence: CN)
  Receive Date: 20241126
  Receipt Date: 20241126
  Transmission Date: 20250114
  Serious: Yes (Hospitalization, Other)
  Sender: B BRAUN
  Company Number: CN-B.Braun Medical Inc.-2166015

PATIENT
  Age: 53 Year
  Sex: Female

DRUGS (3)
  1. CEFUROXIME [Suspect]
     Active Substance: CEFUROXIME
     Indication: Evidence based treatment
  2. AMBROXOL [Concomitant]
     Active Substance: AMBROXOL
  3. ENOXAPARIN [Concomitant]
     Active Substance: ENOXAPARIN

REACTIONS (1)
  - Drug ineffective [Unknown]
